FAERS Safety Report 19092146 (Version 1)
Quarter: 2021Q2

REPORT INFORMATION
  Report Type: Spontaneous
  Country: IN (occurrence: IN)
  Receive Date: 20210405
  Receipt Date: 20210405
  Transmission Date: 20210717
  Serious: Yes (Other)
  Sender: FDA-Public Use
  Company Number: IN-ACCORD-221167

PATIENT
  Age: 52 Year
  Sex: Female

DRUGS (1)
  1. METHOTREXATE. [Suspect]
     Active Substance: METHOTREXATE
     Indication: RHEUMATOID ARTHRITIS

REACTIONS (5)
  - Oral disorder [Unknown]
  - Pancytopenia [Unknown]
  - Oral mucosa erosion [Unknown]
  - Hepatic enzyme increased [Unknown]
  - Oral pigmentation [Unknown]
